FAERS Safety Report 16531756 (Version 1)
Quarter: 2019Q3

REPORT INFORMATION
  Report Type: Spontaneous
  Country: CA (occurrence: CA)
  Receive Date: 20190704
  Receipt Date: 20190704
  Transmission Date: 20191004
  Serious: Yes (Life-Threatening)
  Sender: FDA-Public Use
  Company Number: CA-TEVA-2019-CA-1071970

PATIENT
  Age: 84 Year
  Sex: Female

DRUGS (1)
  1. ROSUVASTATIN-20 [Suspect]
     Active Substance: ROSUVASTATIN
     Indication: HYPERCHOLESTEROLAEMIA
     Dosage: 200 MILLIGRAM DAILY;
     Route: 048

REACTIONS (3)
  - Cough [Recovering/Resolving]
  - Monoplegia [Recovering/Resolving]
  - Muscular weakness [Recovering/Resolving]
